FAERS Safety Report 7794851-3 (Version None)
Quarter: 2011Q4

REPORT INFORMATION
  Report Type: 
  Country: None (occurrence: None)
  Receive Date: 20111004
  Receipt Date: 20110920
  Transmission Date: 20120403
  Serious: Yes (Other)
  Sender: FDA-Public Use
  Company Number: PHHY2011FR83880

PATIENT
  Age: 36 Year
  Sex: Male

DRUGS (9)
  1. CYCLOSPORINE [Suspect]
     Indication: RENAL TRANSPLANT
  2. PREDNISONE [Concomitant]
     Dosage: 1 MG/KG, UNK
  3. METHYLPREDNISOLONE [Concomitant]
     Indication: TRANSPLANT REJECTION
  4. CYCLOSPORINE [Suspect]
     Indication: IMMUNOSUPPRESSION
  5. METHYLPREDNISOLONE [Concomitant]
     Indication: IMMUNOSUPPRESSION
     Dosage: 500 MG/DAY
     Route: 042
  6. MYCOPHENOLATE MOFETIL [Concomitant]
  7. EVEROLIMUS [Suspect]
  8. THYMOGLOBULIN [Concomitant]
     Indication: IMMUNOSUPPRESSION
  9. MYCOPHENOLATE MOFETIL [Suspect]
     Dosage: 1000 MG, BID

REACTIONS (9)
  - NAUSEA [None]
  - NOREPINEPHRINE INCREASED [None]
  - PHAEOCHROMOCYTOMA [None]
  - KIDNEY TRANSPLANT REJECTION [None]
  - ASCITES [None]
  - SECONDARY HYPERTENSION [None]
  - HYPERTENSION [None]
  - ILEITIS [None]
  - ABDOMINAL PAIN [None]
